FAERS Safety Report 4412419-3 (Version None)
Quarter: 2004Q3

REPORT INFORMATION
  Report Type: 
  Country: None (occurrence: None)
  Receive Date: 20040727
  Receipt Date: 20040712
  Transmission Date: 20050211
  Serious: Yes (Hospitalization)
  Sender: FDA-Public Use
  Company Number: 03P-163-0207928-00

PATIENT
  Age: 43 Year
  Sex: Male

DRUGS (8)
  1. NORVIR [Suspect]
     Indication: HIV INFECTION
     Dosage: SEE IMAGE
     Route: 048
     Dates: start: 20021209, end: 20030103
  2. NORVIR [Suspect]
     Indication: HIV INFECTION
     Dosage: SEE IMAGE
     Route: 048
     Dates: start: 20021209
  3. NORVIR [Suspect]
     Indication: HIV INFECTION
     Dosage: SEE IMAGE
     Route: 048
     Dates: start: 20030106
  4. TIPRANAVIR [Concomitant]
  5. NEVIRAPINE [Concomitant]
  6. DIDANOSINE [Concomitant]
  7. VIREAD [Concomitant]
  8. LAMIVUDINE [Concomitant]

REACTIONS (1)
  - MESENTERIC VEIN THROMBOSIS [None]
